FAERS Safety Report 9980949 (Version 1)
Quarter: 2014Q1

REPORT INFORMATION
  Report Type: Spontaneous
  Country: US (occurrence: None)
  Receive Date: 20140306
  Receipt Date: 20140306
  Transmission Date: 20141002
  Serious: Yes (Other)
  Sender: FDA-Public Use
  Company Number: None

PATIENT
  Age: 52 Year
  Sex: Male
  Weight: 104.33 kg

DRUGS (1)
  1. AMLODIPINE AND BENAZEPRIL 10-40 MG [Suspect]
     Indication: HYPERTENSION
     Dosage: 1 PILL ONCE DAILY TAKEN BY MOUTH
     Dates: start: 20140201, end: 20140208

REACTIONS (4)
  - Dizziness [None]
  - Fatigue [None]
  - Hypertension [None]
  - Product substitution issue [None]
